APPROVED DRUG PRODUCT: ALVIMOPAN
Active Ingredient: ALVIMOPAN
Strength: 12MG
Dosage Form/Route: CAPSULE;ORAL
Application: A217753 | Product #001 | TE Code: AB
Applicant: HIKMA PHARMACEUTICALS USA INC
Approved: Aug 31, 2023 | RLD: No | RS: No | Type: RX